FAERS Safety Report 13340301 (Version 1)
Quarter: 2017Q1

REPORT INFORMATION
  Report Type: Spontaneous
  Country: US (occurrence: US)
  Receive Date: 20170316
  Receipt Date: 20170316
  Transmission Date: 20170428
  Serious: No
  Sender: FDA-Public Use
  Company Number: US-AUROBINDO-AUR-APL-2016-08144

PATIENT
  Age: 74 Year
  Sex: Female

DRUGS (2)
  1. CEFADROXIL CAPSULES USP 500 MG [Suspect]
     Active Substance: CEFADROXIL
     Indication: INFECTION
     Dosage: 500 MG, 3 TIMES A DAY
     Route: 048
  2. METFORMIN [Concomitant]
     Active Substance: METFORMIN HYDROCHLORIDE
     Indication: PRODUCT USED FOR UNKNOWN INDICATION
     Route: 065

REACTIONS (4)
  - Muscle spasms [Recovered/Resolved]
  - Skin discolouration [None]
  - Memory impairment [None]
  - Condition aggravated [Recovered/Resolved]
